FAERS Safety Report 6761435-5 (Version None)
Quarter: 2010Q2

REPORT INFORMATION
  Report Type: 
  Country: None (occurrence: None)
  Receive Date: 20100607
  Receipt Date: 20100528
  Transmission Date: 20101027
  Serious: Yes (Other)
  Sender: FDA-Public Use
  Company Number: URSO-2010-042

PATIENT
  Age: 59 Year
  Sex: Female

DRUGS (4)
  1. URSODIOL [Suspect]
     Indication: HEPATITIS CHOLESTATIC
     Dosage: 250MG TID, ORAL; 1-6 DAYS
     Route: 048
     Dates: start: 20100311, end: 20100316
  2. VITAMIN K1 [Suspect]
     Indication: PROTHROMBIN TIME
     Dosage: 20MG QD, ORAL; 2- 6 DFAYS
     Route: 048
     Dates: start: 20100311, end: 20100316
  3. CACIT D3 (CALCIUM CARBONATE/ CHOLECALCIFEROL) [Suspect]
     Indication: HYPOCALCAEMIA
     Dosage: 1 DF QD, ORAL; 3-6 DAYS
     Route: 048
     Dates: start: 20100311, end: 20100316
  4. LEVOTHYROXINE SODIUM [Concomitant]

REACTIONS (5)
  - AGRANULOCYTOSIS [None]
  - AUTOIMMUNE HEPATITIS [None]
  - ESCHERICHIA URINARY TRACT INFECTION [None]
  - HYPOCALCAEMIA [None]
  - URINARY TRACT INFECTION ENTEROCOCCAL [None]
